FAERS Safety Report 6984471-2 (Version None)
Quarter: 2010Q3

REPORT INFORMATION
  Report Type: 
  Country: None (occurrence: None)
  Receive Date: 20100915
  Receipt Date: 20100914
  Transmission Date: 20110219
  Serious: Yes (Hospitalization, Other)
  Sender: FDA-Public Use
  Company Number: BR-ROXANE LABORATORIES, INC.-2010-DE-05011GD

PATIENT
  Sex: Male

DRUGS (1)
  1. PREDNISONE [Suspect]
     Indication: CHRONIC OBSTRUCTIVE PULMONARY DISEASE
     Dosage: 20 MG
     Route: 051

REACTIONS (4)
  - CRYPTOCOCCAL CUTANEOUS INFECTION [None]
  - JOINT CONTRACTURE [None]
  - LYMPHADENOPATHY [None]
  - SKIN ULCER [None]
